FAERS Safety Report 10496032 (Version 1)
Quarter: 2014Q4

REPORT INFORMATION
  Report Type: Spontaneous
  Country: FR (occurrence: FR)
  Receive Date: 20141003
  Receipt Date: 20141003
  Transmission Date: 20150528
  Serious: Yes (Other)
  Sender: FDA-Public Use
  Company Number: FR-ASTRAZENECA-2014SE72993

PATIENT
  Age: 30 Year
  Sex: Male

DRUGS (1)
  1. ENTOCORT [Suspect]
     Active Substance: BUDESONIDE
     Indication: PROTEIN-LOSING GASTROENTEROPATHY
     Route: 048

REACTIONS (3)
  - Electrolyte imbalance [Unknown]
  - Product use issue [Unknown]
  - Incorrect dose administered [Unknown]
